FAERS Safety Report 4445655-0 (Version None)
Quarter: 2004Q3

REPORT INFORMATION
  Report Type: 
  Country: None (occurrence: None)
  Receive Date: 20040910
  Receipt Date: 20040726
  Transmission Date: 20050211
  Serious: Yes (Hospitalization)
  Sender: FDA-Public Use
  Company Number: US-BRISTOL-MYERS SQUIBB COMPANY-12652095

PATIENT
  Age: 5 Month
  Sex: Male

DRUGS (2)
  1. TRIMOX [Suspect]
     Indication: SIMPLE PARTIAL SEIZURES
     Dosage: 250 MG/5 ML
     Route: 048
     Dates: start: 20040719
  2. OMNICEF [Concomitant]
     Dosage: 125/5
     Dates: start: 20040805

REACTIONS (1)
  - ADVERSE EVENT [None]
